FAERS Safety Report 7732803-X (Version None)
Quarter: 2011Q3

REPORT INFORMATION
  Report Type: 
  Country: None (occurrence: None)
  Receive Date: 20110902
  Receipt Date: 20110902
  Transmission Date: 20111222
  Serious: No
  Sender: FDA-Public Use
  Company Number: None

PATIENT
  Sex: Female
  Weight: 76.6579 kg

DRUGS (1)
  1. DURAGESIC-100 [Suspect]
     Indication: BACK PAIN
     Dosage: 100MCG Q72 PATCH TRANSDERMAL
     Route: 062
     Dates: start: 20020101

REACTIONS (2)
  - INADEQUATE ANALGESIA [None]
  - PRODUCT ADHESION ISSUE [None]
